FAERS Safety Report 4835626-4 (Version None)
Quarter: 2005Q4

REPORT INFORMATION
  Report Type: 
  Country: None (occurrence: None)
  Receive Date: 20051123
  Receipt Date: 20051116
  Transmission Date: 20060501
  Serious: Yes (Death, Other)
  Sender: FDA-Public Use
  Company Number: 2005AP05964

PATIENT
  Age: 64 Year
  Sex: Female

DRUGS (5)
  1. IRESSA [Suspect]
     Indication: LUNG NEOPLASM MALIGNANT
     Route: 048
     Dates: start: 20041021, end: 20050419
  2. GEMZAR [Suspect]
     Indication: LUNG NEOPLASM MALIGNANT
     Route: 042
     Dates: start: 20050524, end: 20050614
  3. NAVELBINE [Suspect]
     Indication: LUNG NEOPLASM MALIGNANT
     Route: 042
     Dates: start: 20050524, end: 20050614
  4. CEFOTAX [Concomitant]
     Indication: URINARY TRACT INFECTION
     Route: 042
     Dates: start: 20050705
  5. AZACTAM [Concomitant]
     Indication: URINARY TRACT INFECTION
     Route: 042
     Dates: start: 20050705, end: 20050707

REACTIONS (3)
  - DEATH [None]
  - INTERSTITIAL LUNG DISEASE [None]
  - URINARY TRACT INFECTION [None]
